FAERS Safety Report 5017875-8 (Version None)
Quarter: 2006Q2

REPORT INFORMATION
  Report Type: 
  Country: None (occurrence: None)
  Receive Date: 20060605
  Receipt Date: 20060131
  Transmission Date: 20061013
  Serious: Yes (Hospitalization)
  Sender: FDA-Public Use
  Company Number: PL-BRISTOL-MYERS SQUIBB COMPANY-13264007

PATIENT
  Age: 71 Year
  Sex: Male
  Weight: 92 kg

DRUGS (8)
  1. CISPLATIN [Suspect]
     Indication: BLADDER CANCER
     Dates: start: 20030507, end: 20030619
  2. GEMCITABINE [Suspect]
     Indication: BLADDER CANCER
     Dates: start: 20030629, end: 20030629
  3. ONDANSETRON HCL [Concomitant]
     Dates: start: 20030506
  4. GLICLAZIDE [Concomitant]
     Dates: start: 20030430
  5. NITROFURANTOIN [Concomitant]
     Dates: start: 20030620
  6. RANITIDINE [Concomitant]
     Dates: start: 20030430
  7. THEOPHYLLINE [Concomitant]
  8. LACTULOSE [Concomitant]
     Dates: start: 20030620

REACTIONS (1)
  - THROMBOSIS [None]
